FAERS Safety Report 22208258 (Version 9)
Quarter: 2023Q4

REPORT INFORMATION
  Report Type: Report from Study
  Country: US (occurrence: None)
  Receive Date: 20230413
  Receipt Date: 20231117
  Transmission Date: 20240110
  Serious: Yes (Other)
  Sender: FDA-Public Use
  Company Number: US-ROCHE-3326839

PATIENT
  Age: 63 Year
  Sex: Male
  Weight: 105 kg

DRUGS (30)
  1. RANIBIZUMAB [Suspect]
     Active Substance: RANIBIZUMAB
     Indication: Diabetic retinal oedema
     Dosage: DRUG DOSE FIRST ADMINISTERED IS 10 MG/ML?DOSE LAST STUDY DRUG ADMIN PRIOR AE IS 100 MG/ML?FREQUENCY
     Route: 050
     Dates: start: 20201218
  2. RANIBIZUMAB [Suspect]
     Active Substance: RANIBIZUMAB
  3. RANIBIZUMAB [Suspect]
     Active Substance: RANIBIZUMAB
  4. RANIBIZUMAB [Suspect]
     Active Substance: RANIBIZUMAB
  5. RANIBIZUMAB [Suspect]
     Active Substance: RANIBIZUMAB
  6. NOVOLOG [Concomitant]
     Active Substance: INSULIN ASPART
     Indication: Diabetes mellitus
     Dosage: 1 U
     Route: 058
     Dates: start: 2010
  7. TOUJEO [Concomitant]
     Active Substance: INSULIN GLARGINE
     Indication: Diabetes mellitus
     Dosage: 1 U
     Route: 058
     Dates: start: 202008
  8. GLUCOPHAGE XR [Concomitant]
     Active Substance: METFORMIN HYDROCHLORIDE
     Dosage: DOSE-500 OTHER
     Route: 048
     Dates: start: 2000
  9. ALBUTEROL [Concomitant]
     Active Substance: ALBUTEROL
     Indication: Asthma
     Dosage: 1 INHALATION
     Route: 055
     Dates: start: 2017
  10. RIZATRIPTAN [Concomitant]
     Active Substance: RIZATRIPTAN
     Indication: Migraine
     Dosage: 1 TABLET
     Route: 048
     Dates: start: 2012
  11. SIMVASTATIN [Concomitant]
     Active Substance: SIMVASTATIN
     Indication: Hypercholesterolaemia
     Dosage: 80 OTHER
     Route: 048
     Dates: start: 2000
  12. SILDENAFIL [Concomitant]
     Active Substance: SILDENAFIL
     Indication: Erectile dysfunction
     Route: 048
     Dates: start: 2015
  13. TRIAMCINOLONE [Concomitant]
     Active Substance: TRIAMCINOLONE
     Dosage: 1 OTHER
     Route: 061
     Dates: start: 2017
  14. DICLOFENAC [Concomitant]
     Active Substance: DICLOFENAC
     Indication: Diabetic neuropathy
     Dosage: 1 TABLET
     Route: 048
     Dates: start: 20210414
  15. SPIRIVA [Concomitant]
     Active Substance: TIOTROPIUM BROMIDE MONOHYDRATE
     Indication: Asthma
     Dosage: 2 SPRAY
     Route: 048
     Dates: start: 20220324
  16. POLYTRIM [Concomitant]
     Active Substance: POLYMYXIN B SULFATE\TRIMETHOPRIM SULFATE
     Indication: Infection prophylaxis
     Route: 047
     Dates: start: 20220825
  17. ALENDRONATE [Concomitant]
     Active Substance: ALENDRONATE SODIUM
     Indication: Osteoporosis
     Route: 048
     Dates: start: 20230110
  18. ASPIRIN [Concomitant]
     Active Substance: ASPIRIN
     Dosage: 325 OTHER
     Route: 048
     Dates: start: 20230110
  19. ASPIRIN [Concomitant]
     Active Substance: ASPIRIN
     Dosage: 81 OTHER
     Route: 048
     Dates: start: 20230924
  20. VITAMIN D3 [Concomitant]
     Active Substance: CHOLECALCIFEROL
     Route: 048
     Dates: start: 20230110
  21. LOSARTAN [Concomitant]
     Active Substance: LOSARTAN
     Indication: Hypertension
     Dosage: DOSE- 50 OTHER
     Route: 048
     Dates: start: 20230509
  22. LUCENTIS [Concomitant]
     Active Substance: RANIBIZUMAB
     Indication: Diabetic retinal oedema
     Dosage: DOSE- 0.5 OTHER
     Route: 050
     Dates: start: 20230606, end: 20230606
  23. LUCENTIS [Concomitant]
     Active Substance: RANIBIZUMAB
     Dosage: INJECTION
     Route: 050
     Dates: start: 20230801, end: 20230801
  24. LUCENTIS [Concomitant]
     Active Substance: RANIBIZUMAB
     Dosage: INJECTION
     Route: 050
     Dates: start: 20231115, end: 20231115
  25. PRILOSEC [Concomitant]
     Active Substance: OMEPRAZOLE MAGNESIUM
     Indication: Abdominal pain
     Dosage: DOSE- 20 OTHER
     Route: 048
     Dates: start: 20230711, end: 20230725
  26. KEFLEX [Concomitant]
     Active Substance: CEPHALEXIN
     Indication: Limb injury
     Dosage: DOSE: 500 OTHER
     Route: 048
     Dates: start: 20230725, end: 20230804
  27. FAMOTIDINE [Concomitant]
     Active Substance: FAMOTIDINE
     Indication: Abdominal pain
     Dosage: 20 OTHER
     Route: 048
     Dates: start: 20230828
  28. INFLUENZA VIRUS VACCINE [Concomitant]
     Active Substance: INFLUENZA VIRUS VACCINE
     Route: 030
     Dates: start: 20230930, end: 20230930
  29. MODERNA COVID-19 VACCINE [Concomitant]
     Active Substance: ELASOMERAN
     Route: 030
     Dates: start: 20230930, end: 20230930
  30. ABRYSVO [Concomitant]
     Active Substance: RECOMBINANT STABILIZED RSV A PREFUSION F ANTIGEN\RECOMBINANT STABILIZED RSV B PREFUSION F ANTIGEN
     Route: 030
     Dates: start: 20231111, end: 20231111

REACTIONS (2)
  - Device issue [Unknown]
  - No adverse event [Unknown]

NARRATIVE: CASE EVENT DATE: 20230406
